FAERS Safety Report 7374642-8 (Version None)
Quarter: 2011Q1

REPORT INFORMATION
  Report Type: 
  Country: None (occurrence: None)
  Receive Date: 20110325
  Receipt Date: 20100609
  Transmission Date: 20110831
  Serious: No
  Sender: FDA-Public Use
  Company Number: US-MYLANLABS-2010S1010318

PATIENT
  Age: 56 Year
  Sex: Male

DRUGS (7)
  1. FENTANYL-100 [Suspect]
     Dosage: QOD
     Route: 062
     Dates: start: 20100401, end: 20100608
  2. CHEMOTHERAPEUTICS [Concomitant]
     Indication: GASTRIC CANCER
     Dosage: EVERY WEEK FOR TWO WEEKS; OFF ONE WEEK; REPEAT CYCLE
     Dates: start: 20100101
  3. FENTANYL-100 [Suspect]
     Indication: CANCER PAIN
     Dosage: CHANGED Q72H
     Route: 062
     Dates: start: 20100101, end: 20100301
  4. ZOFRAN [Concomitant]
     Indication: NAUSEA
     Dates: start: 20100101
  5. NEXIUM [Concomitant]
     Indication: ABDOMINAL DISCOMFORT
     Dates: start: 20100101
  6. CARAFATE [Concomitant]
     Indication: MOUTH ULCERATION
     Dates: start: 20100101
  7. FENTANYL-100 [Suspect]
     Dosage: QOD
     Route: 062
     Dates: start: 20100609

REACTIONS (3)
  - EUPHORIC MOOD [None]
  - DRUG WITHDRAWAL SYNDROME [None]
  - DRUG EFFECT INCREASED [None]
